FAERS Safety Report 5829988-9 (Version None)
Quarter: 2008Q3

REPORT INFORMATION
  Report Type: 
  Country: None (occurrence: None)
  Receive Date: 20080801
  Receipt Date: 20080722
  Transmission Date: 20090109
  Serious: Yes (Hospitalization, Other)
  Sender: FDA-Public Use
  Company Number: US-ROCHE-570765

PATIENT
  Sex: Male

DRUGS (1)
  1. VALIUM [Suspect]
     Dosage: ONE DOSE.
     Route: 065
     Dates: start: 19980101, end: 19980101

REACTIONS (6)
  - AGITATION [None]
  - DISORIENTATION [None]
  - DYSKINESIA [None]
  - HAEMORRHAGE [None]
  - HALLUCINATION [None]
  - INSOMNIA [None]
